FAERS Safety Report 15440957 (Version 1)
Quarter: 2018Q3

REPORT INFORMATION
  Report Type: Spontaneous
  Country: US (occurrence: US)
  Receive Date: 20180925
  Receipt Date: 20180925
  Transmission Date: 20181010
  Serious: Yes (Hospitalization)
  Sender: FDA-Public Use
  Company Number: None

PATIENT
  Age: 52 Year
  Sex: Male
  Weight: 106 kg

DRUGS (1)
  1. APIXABAN [Suspect]
     Active Substance: APIXABAN
     Route: 048
     Dates: start: 20170327, end: 20180723

REACTIONS (7)
  - Inflammation [None]
  - Neuroendocrine tumour [None]
  - Gastrointestinal haemorrhage [None]
  - Metastases to liver [None]
  - Malignant neoplasm progression [None]
  - Condition aggravated [None]
  - Anaemia of chronic disease [None]

NARRATIVE: CASE EVENT DATE: 20180523
